FAERS Safety Report 8250958-8 (Version None)
Quarter: 2012Q1

REPORT INFORMATION
  Report Type: 
  Country: None (occurrence: None)
  Receive Date: 20120328
  Receipt Date: 20120313
  Transmission Date: 20120608
  Serious: Yes (Other)
  Sender: FDA-Public Use
  Company Number: B0790668A

PATIENT
  Age: 33 Year

DRUGS (5)
  1. MELPHALAN HYDROCHLORIDE [Suspect]
     Indication: HODGKIN'S DISEASE
     Dosage: 70 MG/M2 / INTRAVENOUS
     Route: 042
  2. FLUDARABINE PHOSPHATE [Suspect]
     Indication: HODGKIN'S DISEASE
     Dosage: 32 MG/M2 / INTRAVENOUS
     Route: 042
  3. TACROLIMUS [Suspect]
     Indication: PROPHYLAXIS AGAINST GRAFT VERSUS HOST DISEASE
  4. METHOTREXATE [Suspect]
     Indication: PROPHYLAXIS AGAINST GRAFT VERSUS HOST DISEASE
     Dosage: 5 MG/M2
  5. GEMCITABINE [Suspect]
     Indication: HODGKIN'S DISEASE
     Dosage: 800 MG/M2/ INTRAVENOUS
     Route: 042

REACTIONS (3)
  - TOXICITY TO VARIOUS AGENTS [None]
  - GASTROINTESTINAL TOXICITY [None]
  - CHRONIC GRAFT VERSUS HOST DISEASE [None]
